FAERS Safety Report 16688798 (Version 1)
Quarter: 2019Q3

REPORT INFORMATION
  Report Type: Spontaneous
  Country: VN (occurrence: VN)
  Receive Date: 20190809
  Receipt Date: 20190809
  Transmission Date: 20191004
  Serious: Yes (Other)
  Sender: FDA-Public Use
  Company Number: VN-BAUSCH-BL-2019-021841

PATIENT
  Age: 48 Year
  Sex: Male

DRUGS (14)
  1. HYDROCORTISONE. [Suspect]
     Active Substance: HYDROCORTISONE
     Indication: ACUTE RESPIRATORY DISTRESS SYNDROME
     Dosage: 100 MG/8 HOURS
     Route: 065
  2. ISONIAZID. [Concomitant]
     Active Substance: ISONIAZID
     Indication: TUBERCULOSIS
  3. LEVOFLOXACIN. [Concomitant]
     Active Substance: LEVOFLOXACIN
     Indication: ACUTE RESPIRATORY DISTRESS SYNDROME
  4. HEPARIN [Concomitant]
     Active Substance: HEPARIN SODIUM
     Indication: THROMBOSIS PROPHYLAXIS
     Route: 040
  5. HEPARIN [Concomitant]
     Active Substance: HEPARIN SODIUM
     Dosage: MAINTAINING DOSE 10 IU/KG/HOUR
  6. AMOXICILLIN. [Concomitant]
     Active Substance: AMOXICILLIN
     Indication: COUGH
  7. RIFAMPICIN [Concomitant]
     Active Substance: RIFAMPIN
     Indication: TUBERCULOSIS
  8. AMIKACIN. [Concomitant]
     Active Substance: AMIKACIN
     Indication: ACUTE RESPIRATORY DISTRESS SYNDROME
  9. PYRAZINAMIDE. [Concomitant]
     Active Substance: PYRAZINAMIDE
     Indication: TUBERCULOSIS
  10. AMOXICILLIN. [Concomitant]
     Active Substance: AMOXICILLIN
     Indication: PYREXIA
  11. AMOXICILLIN. [Concomitant]
     Active Substance: AMOXICILLIN
     Indication: PRODUCTIVE COUGH
  12. CEFTRIAXONE. [Concomitant]
     Active Substance: CEFTRIAXONE
     Indication: PNEUMONIA
  13. ETHAMBUTOL [Concomitant]
     Active Substance: ETHAMBUTOL HYDROCHLORIDE
     Indication: TUBERCULOSIS
  14. MEROPENEM. [Concomitant]
     Active Substance: MEROPENEM
     Indication: ACUTE RESPIRATORY DISTRESS SYNDROME

REACTIONS (1)
  - Myopathy [Unknown]
